FAERS Safety Report 9868225 (Version 5)
Quarter: 2014Q1

REPORT INFORMATION
  Report Type: Spontaneous
  Country: SE (occurrence: SE)
  Receive Date: 20140204
  Receipt Date: 20140312
  Transmission Date: 20141002
  Serious: Yes (Life-Threatening, Hospitalization, Other)
  Sender: FDA-Public Use
  Company Number: PHHY2014SE011798

PATIENT
  Age: 38 Year
  Sex: Female

DRUGS (2)
  1. GILENYA [Suspect]
     Indication: MULTIPLE SCLEROSIS
     Dosage: 0.5 MG, QD
     Route: 048
     Dates: start: 20130828
  2. NYSTATIN [Concomitant]
     Indication: ORAL CANDIDIASIS
     Dosage: 1 ML, Q6H
     Route: 048
     Dates: start: 20140114

REACTIONS (24)
  - Ventricular tachycardia [Unknown]
  - Left ventricular failure [Unknown]
  - Palpitations [Unknown]
  - Loss of consciousness [Unknown]
  - Dizziness [Unknown]
  - Oxygen saturation decreased [Unknown]
  - Dilatation ventricular [Unknown]
  - Left ventricular dysfunction [Unknown]
  - Hypokinesia [Unknown]
  - Cardiogenic shock [Unknown]
  - Hypertension [Unknown]
  - Pulmonary oedema [Unknown]
  - Pulmonary mass [Unknown]
  - Troponin I increased [Unknown]
  - C-reactive protein increased [Unknown]
  - Dilatation atrial [Unknown]
  - Mitral valve incompetence [Unknown]
  - Electrocardiogram QT prolonged [Unknown]
  - Heart rate decreased [Unknown]
  - Electrocardiogram QRS complex prolonged [Unknown]
  - Electrocardiogram abnormal [Unknown]
  - Blood glucose increased [Unknown]
  - Multiple sclerosis relapse [Unknown]
  - Productive cough [Unknown]
